FAERS Safety Report 22369412 (Version 2)
Quarter: 2023Q2

REPORT INFORMATION
  Report Type: Report from Study
  Country: CH (occurrence: CH)
  Receive Date: 20230526
  Receipt Date: 20230621
  Transmission Date: 20230721
  Serious: Yes (Hospitalization, Other)
  Sender: FDA-Public Use
  Company Number: CH-ABBVIE-5176439

PATIENT
  Age: 55 Year
  Sex: Female
  Weight: 50 kg

DRUGS (5)
  1. SKYRIZI [Suspect]
     Active Substance: RISANKIZUMAB-RZAA
     Indication: Psoriasis
     Route: 058
     Dates: start: 20220919
  2. Ceftriaxonum [Concomitant]
     Indication: Product used for unknown indication
     Dates: start: 202301
  3. PIPERACILLIN SODIUM\TAZOBACTAM SODIUM [Concomitant]
     Active Substance: PIPERACILLIN SODIUM\TAZOBACTAM SODIUM
     Indication: Product used for unknown indication
     Dates: start: 202301
  4. AMOXICILLIN\CLAVULANATE POTASSIUM [Concomitant]
     Active Substance: AMOXICILLIN\CLAVULANATE POTASSIUM
     Indication: Product used for unknown indication
     Dates: start: 202301
  5. ROCEPHIN [Concomitant]
     Active Substance: CEFTRIAXONE SODIUM
     Indication: Product used for unknown indication
     Dates: start: 202301

REACTIONS (10)
  - Urosepsis [Unknown]
  - Ureterolithiasis [Unknown]
  - Urinary retention [Unknown]
  - Ureteric stenosis [Unknown]
  - Calculus urinary [Recovered/Resolved]
  - Ureteroscopy [Unknown]
  - Kidney infection [Unknown]
  - Urinary tract infection [Unknown]
  - Urogram [Unknown]
  - Lithotripsy [Unknown]

NARRATIVE: CASE EVENT DATE: 20221230
